FAERS Safety Report 13813857 (Version 1)
Quarter: 2017Q3

REPORT INFORMATION
  Report Type: Spontaneous
  Country: US (occurrence: US)
  Receive Date: 20170731
  Receipt Date: 20170731
  Transmission Date: 20171127
  Serious: No
  Sender: FDA-Public Use
  Company Number: US-PFIZER INC-2017327217

PATIENT
  Age: 6 Decade
  Sex: Male
  Weight: 71.4 kg

DRUGS (1)
  1. CRIZOTINIB [Suspect]
     Active Substance: CRIZOTINIB
     Dosage: UNK
     Dates: start: 20150825, end: 20160601

REACTIONS (1)
  - Tinnitus [Unknown]
